FAERS Safety Report 6125957-2 (Version None)
Quarter: 2009Q1

REPORT INFORMATION
  Report Type: 
  Country: None (occurrence: None)
  Receive Date: 20090318
  Receipt Date: 20090303
  Transmission Date: 20090719
  Serious: Yes (Hospitalization)
  Sender: FDA-Public Use
  Company Number: 2009S1003800

PATIENT
  Age: 49 Year
  Sex: Female

DRUGS (1)
  1. ENDEP [Suspect]
     Indication: PAIN
     Dosage: 10 MG;DAILY; ORAL
     Route: 048
     Dates: start: 20090223, end: 20090225

REACTIONS (1)
  - PULMONARY EMBOLISM [None]
